FAERS Safety Report 8306143-4 (Version None)
Quarter: 2012Q2

REPORT INFORMATION
  Report Type: 
  Country: None (occurrence: None)
  Receive Date: 20120423
  Receipt Date: 20120413
  Transmission Date: 20120825
  Serious: Yes (Other)
  Sender: FDA-Public Use
  Company Number: US-ABBOTT-11P-163-0875786-00

PATIENT
  Age: 30 Year
  Sex: Female

DRUGS (4)
  1. PAMELOR [Concomitant]
     Indication: DEPRESSION
  2. PAMELOR [Concomitant]
     Route: 048
  3. RESTERIL [Concomitant]
     Indication: INSOMNIA
     Dosage: AT BEDTIME
  4. HUMIRA [Suspect]
     Indication: CROHN'S DISEASE
     Dates: start: 20100301

REACTIONS (4)
  - FUNGAL INFECTION [None]
  - HYPOAESTHESIA [None]
  - BREAST MASS [None]
  - DEPRESSION [None]
